FAERS Safety Report 7118703-7 (Version None)
Quarter: 2010Q4

REPORT INFORMATION
  Report Type: 
  Country: None (occurrence: None)
  Receive Date: 20101123
  Receipt Date: 20101112
  Transmission Date: 20110411
  Serious: No
  Sender: FDA-Public Use
  Company Number: US-PFIZER INC-2010150387

PATIENT
  Sex: Female
  Weight: 83.914 kg

DRUGS (13)
  1. PRISTIQ [Suspect]
     Indication: DEPRESSION
     Dosage: 50 MG, 1X/DAY
     Dates: start: 20101101
  2. PRISTIQ [Suspect]
     Indication: ANXIETY
  3. ACTONEL [Concomitant]
  4. AMARYL [Concomitant]
  5. PRAVACHOL [Concomitant]
  6. TOPROL-XL [Concomitant]
  7. ASPIRIN [Concomitant]
  8. CARDIZEM [Concomitant]
  9. PLAVIX [Concomitant]
  10. ALTACE [Concomitant]
  11. CALCIUM WITH VITAMIN D [Concomitant]
  12. FISH OIL [Concomitant]
  13. CENTRUM [Concomitant]

REACTIONS (2)
  - HYPERHIDROSIS [None]
  - INSOMNIA [None]
